FAERS Safety Report 20361407 (Version 1)
Quarter: 2022Q1

REPORT INFORMATION
  Report Type: Spontaneous
  Country: US (occurrence: US)
  Receive Date: 20220121
  Receipt Date: 20220121
  Transmission Date: 20220423
  Serious: No
  Sender: FDA-Public Use
  Company Number: US-AMGEN-USASP2022006227

PATIENT
  Age: 23 Year
  Sex: Female

DRUGS (1)
  1. BLINCYTO [Suspect]
     Active Substance: BLINATUMOMAB
     Indication: Product used for unknown indication
     Dosage: 28 MICROGRAM, QD (OVER 48 HOURS)
     Route: 065

REACTIONS (3)
  - Papule [Unknown]
  - Pain in extremity [Recovered/Resolved]
  - Intercepted product preparation error [Unknown]

NARRATIVE: CASE EVENT DATE: 20201101
